FAERS Safety Report 16750826 (Version 1)
Quarter: 2019Q3

REPORT INFORMATION
  Report Type: Spontaneous
  Country: DE (occurrence: DE)
  Receive Date: 20190828
  Receipt Date: 20190828
  Transmission Date: 20191005
  Serious: Yes (Hospitalization)
  Sender: FDA-Public Use
  Company Number: DE-MYLANLABS-2019M1079957

PATIENT
  Age: 79 Year
  Sex: Male

DRUGS (4)
  1. QUETIAPINE. [Suspect]
     Active Substance: QUETIAPINE
     Indication: HALLUCINATION, VISUAL
     Dosage: 50 MILLIGRAM, BID
     Route: 065
  2. OXAZEPAM. [Suspect]
     Active Substance: OXAZEPAM
     Indication: INSOMNIA
     Dosage: AT BEDTIME
     Route: 065
  3. RISPERIDONE. [Suspect]
     Active Substance: RISPERIDONE
     Indication: HALLUCINATION, VISUAL
     Dosage: 0.5 MILLIGRAM, BID
     Route: 065
  4. RIVASTIGMINE. [Suspect]
     Active Substance: RIVASTIGMINE
     Indication: AUTONOMIC NERVOUS SYSTEM IMBALANCE
     Dosage: RIVASTIGMINE 9.5 MG/24H
     Route: 062

REACTIONS (5)
  - Hypersomnia [Recovered/Resolved]
  - Abnormal behaviour [Recovered/Resolved]
  - Off label use [Recovered/Resolved]
  - Somnolence [Recovered/Resolved]
  - Condition aggravated [Recovered/Resolved]
